FAERS Safety Report 8287372-5 (Version None)
Quarter: 2012Q2

REPORT INFORMATION
  Report Type: 
  Country: None (occurrence: None)
  Receive Date: 20120416
  Receipt Date: 20120410
  Transmission Date: 20120825
  Serious: Yes (Other)
  Sender: FDA-Public Use
  Company Number: JP-PFIZER INC-2012082289

PATIENT
  Age: 77 Year
  Sex: Male

DRUGS (2)
  1. ZYVOX [Suspect]
     Indication: OSTEOMYELITIS
     Dosage: 1200 MG, 1X/DAY
     Route: 041
     Dates: start: 20120328, end: 20120402
  2. ZYVOX [Suspect]
     Dosage: 600 MG, 1X/DAY
     Route: 041
     Dates: start: 20120403

REACTIONS (4)
  - ALANINE AMINOTRANSFERASE INCREASED [None]
  - RENAL IMPAIRMENT [None]
  - HYPONATRAEMIA [None]
  - ASPARTATE AMINOTRANSFERASE INCREASED [None]
